FAERS Safety Report 9030822 (Version 3)
Quarter: 2013Q1

REPORT INFORMATION
  Report Type: Spontaneous
  Country: US (occurrence: US)
  Receive Date: 20130123
  Receipt Date: 20130305
  Transmission Date: 20140127
  Serious: Yes (Other)
  Sender: FDA-Public Use
  Company Number: US-ROCHE-1181162

PATIENT
  Age: 63 Year
  Sex: Male

DRUGS (7)
  1. AVASTIN [Suspect]
     Indication: NON-SMALL CELL LUNG CANCER
     Route: 065
     Dates: start: 201207, end: 20121102
  2. TARCEVA [Suspect]
     Indication: NON-SMALL CELL LUNG CANCER
     Route: 048
     Dates: start: 20121212
  3. CARBOPLATIN [Suspect]
     Indication: NON-SMALL CELL LUNG CANCER
     Route: 065
     Dates: start: 201207, end: 20121102
  4. TAXOL [Suspect]
     Indication: NON-SMALL CELL LUNG CANCER
     Route: 065
     Dates: start: 201207, end: 20121102
  5. LISINOPRIL [Concomitant]
     Indication: CORONARY ARTERY DISEASE
  6. CARVEDILOL [Concomitant]
     Indication: CORONARY ARTERY DISEASE
  7. SIMVASTATIN [Concomitant]
     Indication: CORONARY ARTERY DISEASE

REACTIONS (14)
  - Coronary artery disease [Unknown]
  - White blood cell count decreased [Recovering/Resolving]
  - Red blood cell count decreased [Recovering/Resolving]
  - Fatigue [Recovering/Resolving]
  - Appetite disorder [Not Recovered/Not Resolved]
  - Temperature regulation disorder [Not Recovered/Not Resolved]
  - Erythema [Recovering/Resolving]
  - Acne [Recovered/Resolved]
  - Dry skin [Recovering/Resolving]
  - Skin swelling [Not Recovered/Not Resolved]
  - Skin burning sensation [Recovering/Resolving]
  - Blood cholesterol increased [Unknown]
  - Dermatitis acneiform [Recovered/Resolved]
  - Pain [Recovering/Resolving]
